FAERS Safety Report 11906015 (Version 3)
Quarter: 2016Q1

REPORT INFORMATION
  Report Type: Spontaneous
  Country: US (occurrence: US)
  Receive Date: 20160111
  Receipt Date: 20160201
  Transmission Date: 20160526
  Serious: Yes (Other)
  Sender: FDA-Public Use
  Company Number: US-BAYER-2015-498733

PATIENT
  Age: 67 Year
  Sex: Female
  Weight: 84.81 kg

DRUGS (6)
  1. CELEBREX [Suspect]
     Active Substance: CELECOXIB
     Dosage: UNK, QD
     Dates: start: 2013
  2. SKELAXIN [Concomitant]
     Active Substance: METAXALONE
     Indication: MUSCLE RELAXANT THERAPY
     Dosage: TAKES UP TO 3 TIMES A DAY
  3. LOTREL [Concomitant]
     Active Substance: AMLODIPINE BESYLATE\BENAZEPRIL HYDROCHLORIDE
     Indication: HYPERTENSION
     Dosage: UNK, QD
  4. MOBIC [Suspect]
     Active Substance: MELOXICAM
  5. ALEVE [Suspect]
     Active Substance: NAPROXEN SODIUM
     Dosage: ONCE OR TWICE A DAY
     Dates: start: 20150609
  6. NORCO [Concomitant]
     Active Substance: ACETAMINOPHEN\HYDROCODONE BITARTRATE
     Indication: PAIN
     Dosage: CAN TAKE UP TO 3 A DAY AS NEEDED

REACTIONS (14)
  - Gastric disorder [None]
  - Vasodilatation [None]
  - Gastritis [None]
  - Ocular hyperaemia [None]
  - Abdominal pain upper [None]
  - Osteoarthritis [None]
  - Blood pressure increased [None]
  - Erythema [None]
  - Heart valve incompetence [None]
  - Heart valve incompetence [None]
  - Gastrooesophageal reflux disease [None]
  - Feeling hot [None]
  - Cardiac murmur [None]
  - Epigastric discomfort [None]

NARRATIVE: CASE EVENT DATE: 2015
